FAERS Safety Report 8012487-6 (Version None)
Quarter: 2011Q4

REPORT INFORMATION
  Report Type: 
  Country: None (occurrence: None)
  Receive Date: 20111229
  Receipt Date: 20111223
  Transmission Date: 20120403
  Serious: Yes (Death)
  Sender: FDA-Public Use
  Company Number: CA-ROCHE-1016266

PATIENT
  Sex: Female
  Weight: 65.83 kg

DRUGS (8)
  1. XELODA [Suspect]
     Indication: BREAST CANCER
     Route: 048
     Dates: start: 20110801
  2. TYKERB [Concomitant]
  3. EFFEXOR [Concomitant]
  4. TYLENOL W/ CODEINE NO. 3 [Concomitant]
  5. IBUPROFEN [Concomitant]
  6. ZOPLICONE (UNK INGREDIENTS) [Concomitant]
  7. RANITIDINE [Concomitant]
  8. HERCEPTIN [Suspect]
     Indication: BREAST CANCER
     Route: 042
     Dates: start: 20100225, end: 20110101

REACTIONS (1)
  - DISEASE PROGRESSION [None]
